FAERS Safety Report 5534345-9 (Version None)
Quarter: 2007Q4

REPORT INFORMATION
  Report Type: 
  Country: None (occurrence: None)
  Receive Date: 20071205
  Receipt Date: 20071121
  Transmission Date: 20080405
  Serious: Yes (Other)
  Sender: FDA-Public Use
  Company Number: ES-AMGEN-US254456

PATIENT
  Age: 71 Year
  Sex: Female

DRUGS (4)
  1. ENBREL [Suspect]
     Indication: RHEUMATOID ARTHRITIS
     Route: 058
     Dates: start: 20070412, end: 20070713
  2. ENBREL [Suspect]
     Dosage: LYOPHILIZED 25 MG TWICE PER WEEK
     Route: 058
     Dates: start: 20070101, end: 20070405
  3. ENBREL [Suspect]
     Dosage: LYOPHILIZED 50 MG ONCE PER WEEK
     Route: 058
     Dates: start: 20070101, end: 20070101
  4. ENBREL [Suspect]
     Dosage: LYOPHILIZED 25 MG TWICE PER WEEK
     Route: 058
     Dates: start: 20070101, end: 20070101

REACTIONS (1)
  - DRUG EFFECT DECREASED [None]
